FAERS Safety Report 6260525-3 (Version None)
Quarter: 2009Q3

REPORT INFORMATION
  Report Type: 
  Country: None (occurrence: None)
  Receive Date: 20090708
  Receipt Date: 20090630
  Transmission Date: 20100115
  Serious: Yes (Hospitalization)
  Sender: FDA-Public Use
  Company Number: DE-JNJFOC-20071110258

PATIENT
  Age: 56 Year
  Sex: Male
  Weight: 87 kg

DRUGS (9)
  1. REMICADE [Suspect]
     Indication: ANKYLOSING SPONDYLITIS
     Route: 042
  2. HYLAK [Concomitant]
  3. LOPERAMIDE [Concomitant]
  4. CLAVERSAL [Concomitant]
  5. METRONIDAZOLE [Concomitant]
  6. PREDNISOLONE [Concomitant]
  7. LANTAREL [Concomitant]
     Indication: SPONDYLITIS
     Route: 050
  8. FORTEO [Concomitant]
     Indication: OSTEOPOROSIS
     Route: 050
  9. DURAGESIC-100 [Concomitant]

REACTIONS (4)
  - DEEP VEIN THROMBOSIS [None]
  - ENTEROCOLITIS BACTERIAL [None]
  - TESTICULAR NEOPLASM [None]
  - TESTICULAR SEMINOMA (PURE) [None]
